FAERS Safety Report 23519893 (Version 1)
Quarter: 2024Q1

REPORT INFORMATION
  Report Type: Report from Study
  Country: US (occurrence: US)
  Receive Date: 20240213
  Receipt Date: 20240213
  Transmission Date: 20240410
  Serious: Yes (Hospitalization, Other)
  Sender: FDA-Public Use
  Company Number: US-ABBVIE-5631346

PATIENT
  Age: 62 Year
  Sex: Female

DRUGS (1)
  1. HUMIRA [Suspect]
     Active Substance: ADALIMUMAB
     Indication: Crohn^s disease
     Dosage: FORM STRENGTH 40 MILLIGRAM, CITRATE FREE
     Route: 058
     Dates: start: 20211230

REACTIONS (5)
  - Sepsis [Unknown]
  - Surgery [Unknown]
  - Renal failure [Recovered/Resolved]
  - Colectomy [Unknown]
  - Renal failure [Unknown]

NARRATIVE: CASE EVENT DATE: 20220201
